FAERS Safety Report 14017398 (Version 2)
Quarter: 2017Q4

REPORT INFORMATION
  Report Type: Report from Study
  Country: JP (occurrence: JP)
  Receive Date: 20170927
  Receipt Date: 20171212
  Transmission Date: 20180321
  Serious: Yes (Other)
  Sender: FDA-Public Use
  Company Number: JP-GILEAD-2017-0295238

PATIENT
  Age: 61 Year
  Sex: Female

DRUGS (12)
  1. AMBRISENTAN [Suspect]
     Active Substance: AMBRISENTAN
     Indication: PULMONARY ARTERIAL HYPERTENSION
     Dosage: 2.5 MG, BID
     Route: 048
     Dates: start: 20130704
  2. PREDONINE [Concomitant]
     Active Substance: PREDNISOLONE
     Dosage: UNK
  3. BONOTEO [Concomitant]
     Active Substance: MINODRONIC ACID
     Dosage: UNK
     Dates: start: 20131219, end: 20141023
  4. AMBRISENTAN [Suspect]
     Active Substance: AMBRISENTAN
     Indication: MIXED CONNECTIVE TISSUE DISEASE
  5. BONOTEO [Concomitant]
     Active Substance: MINODRONIC ACID
     Indication: OSTEOPOROSIS
     Dosage: UNK
     Dates: end: 20141023
  6. AMBRISENTAN [Suspect]
     Active Substance: AMBRISENTAN
     Indication: COLLAGEN DISORDER
     Dosage: 5 MG, QD
     Route: 048
     Dates: end: 20150212
  7. REVATIO [Concomitant]
     Active Substance: SILDENAFIL CITRATE
     Dosage: UNK
  8. MUCODYNE [Concomitant]
     Active Substance: CARBOCYSTEINE
     Indication: EMPHYSEMA
     Dosage: UNK
  9. CODEINE PHOSPHATE [Concomitant]
     Active Substance: CODEINE PHOSPHATE
     Dosage: UNK
  10. BERASUS [Concomitant]
     Active Substance: BERAPROST SODIUM
     Dosage: UNK
  11. MUCODYNE [Concomitant]
     Active Substance: CARBOCYSTEINE
     Dosage: UNK
     Dates: start: 20131219
  12. CODEINE PHOSPHATE HYDRATE [Concomitant]
     Active Substance: CODEINE PHOSPHATE
     Indication: EMPHYSEMA
     Dosage: UNK
     Dates: start: 20131219

REACTIONS (2)
  - Cardiac failure [Recovering/Resolving]
  - Fluid retention [Recovering/Resolving]

NARRATIVE: CASE EVENT DATE: 20150212
